FAERS Safety Report 4269596-7 (Version None)
Quarter: 2004Q1

REPORT INFORMATION
  Report Type: 
  Country: None (occurrence: None)
  Receive Date: 20040112
  Receipt Date: 20031231
  Transmission Date: 20041129
  Serious: Yes (Hospitalization)
  Sender: FDA-Public Use
  Company Number: 2004192416US

PATIENT
  Age: 71 Year
  Sex: Female
  Weight: 83 kg

DRUGS (3)
  1. CAMPTOSAR [Suspect]
     Indication: SMALL CELL LUNG CANCER STAGE UNSPECIFIED
     Dosage: 60 MG/M2, DAY 1, 8
     Dates: start: 20031014, end: 20031021
  2. CISPLATIN [Suspect]
     Indication: SMALL CELL LUNG CANCER STAGE UNSPECIFIED
     Dosage: 60 MG/M2, DAY 1
     Dates: start: 20031014
  3. RADIOTHERAPY [Suspect]
     Dates: start: 20031015, end: 20031104

REACTIONS (14)
  - ANOREXIA [None]
  - DEHYDRATION [None]
  - DIARRHOEA [None]
  - DUODENAL ULCER [None]
  - FEBRILE NEUTROPENIA [None]
  - HAEMOGLOBIN DECREASED [None]
  - HYPOCALCAEMIA [None]
  - INTESTINAL ULCER [None]
  - LEUKOPENIA [None]
  - NAUSEA [None]
  - OESOPHAGEAL ULCER [None]
  - OESOPHAGITIS [None]
  - PLATELET COUNT DECREASED [None]
  - VOMITING [None]
